FAERS Safety Report 9168190 (Version 1)
Quarter: 2013Q1

REPORT INFORMATION
  Report Type: Spontaneous
  Country: GB (occurrence: None)
  Receive Date: 20130308
  Receipt Date: 20130308
  Transmission Date: 20140127
  Serious: Yes (Hospitalization)
  Sender: FDA-Public Use
  Company Number: AUR-APL-2013-01956

PATIENT
  Age: 34 Year
  Sex: Male
  Weight: 75 kg

DRUGS (2)
  1. NAPROXEN (NAPROXEN) [Suspect]
     Indication: BACK PAIN
     Dosage: (500 MG,2 IN 1 D)
     Route: 048
     Dates: start: 20130208, end: 20130210
  2. CODEINE (CODEINE) [Concomitant]
     Indication: PRODUCT USED FOR UNKNOWN INDICATION

REACTIONS (4)
  - Angina pectoris [None]
  - Abdominal pain upper [None]
  - Abdominal distension [None]
  - Abdominal pain upper [None]
